FAERS Safety Report 23260738 (Version 3)
Quarter: 2024Q1

REPORT INFORMATION
  Report Type: Spontaneous
  Country: EG (occurrence: EG)
  Receive Date: 20231205
  Receipt Date: 20240103
  Transmission Date: 20240410
  Serious: Yes (Death, Other)
  Sender: FDA-Public Use
  Company Number: EG-NOVOPROD-1145534

PATIENT
  Age: 864 Month
  Sex: Male
  Weight: 70 kg

DRUGS (2)
  1. INSULIN HUMAN [Suspect]
     Active Substance: INSULIN HUMAN
     Indication: Diabetes mellitus
     Dosage: 20 U AND 10 U
     Route: 058
  2. TORSEMIDE [Concomitant]
     Active Substance: TORSEMIDE
     Indication: Diuretic therapy
     Dosage: UNK
     Route: 048

REACTIONS (3)
  - Circulatory collapse [Fatal]
  - Nephropathy [Unknown]
  - Condition aggravated [Unknown]
